FAERS Safety Report 8189310-2 (Version None)
Quarter: 2012Q1

REPORT INFORMATION
  Report Type: 
  Country: None (occurrence: None)
  Receive Date: 20120307
  Receipt Date: 20120223
  Transmission Date: 20120608
  Serious: Yes (Life-Threatening, Hospitalization, Other)
  Sender: FDA-Public Use
  Company Number: BR-RANBAXY-2012RR-53226

PATIENT
  Age: 47 Year
  Sex: Female

DRUGS (10)
  1. MEROPENEM [Concomitant]
     Indication: PRODUCT USED FOR UNKNOWN INDICATION
     Dosage: UNK
     Route: 065
  2. TRETINOIN [Suspect]
     Indication: ACUTE PROMYELOCYTIC LEUKAEMIA
     Dosage: UNK
     Route: 048
  3. MITOXANTRONE [Suspect]
     Indication: ACUTE PROMYELOCYTIC LEUKAEMIA
     Dosage: UNK
     Route: 065
  4. METHOTREXATE [Concomitant]
     Indication: ACUTE PROMYELOCYTIC LEUKAEMIA
     Dosage: UNK
     Route: 065
  5. FLUCONAZOLE [Suspect]
     Indication: CANDIDIASIS
     Dosage: 200 MG/DAY
     Route: 048
  6. METAMIZOLE [Suspect]
     Indication: ACUTE PROMYELOCYTIC LEUKAEMIA
     Dosage: UNK
     Route: 065
  7. AMPHOTERICIN B [Suspect]
     Indication: PRODUCT USED FOR UNKNOWN INDICATION
     Dosage: 30 MG/DAY 6:0
     Route: 042
  8. TRETINOIN [Concomitant]
     Dosage: 20 MG/M2/DAY
     Route: 065
  9. CEFEPIME [Suspect]
     Indication: ACUTE PROMYELOCYTIC LEUKAEMIA
     Dosage: 2 G, EVERY 8:0
     Route: 042
  10. CYTARABINE [Suspect]
     Indication: ACUTE PROMYELOCYTIC LEUKAEMIA
     Dosage: UNK
     Route: 065

REACTIONS (5)
  - RENAL FAILURE ACUTE [None]
  - DYSPNOEA [None]
  - CANDIDIASIS [None]
  - HEPATOMEGALY [None]
  - RESPIRATORY TRACT HAEMORRHAGE [None]
